FAERS Safety Report 15259018 (Version 1)
Quarter: 2018Q3

REPORT INFORMATION
  Report Type: Spontaneous
  Country: US (occurrence: US)
  Receive Date: 20180718
  Receipt Date: 20180718
  Transmission Date: 20181010
  Serious: No
  Sender: FDA-Public Use
  Company Number: None

PATIENT
  Age: 66 Year
  Sex: Female

DRUGS (3)
  1. IBRANCE [Suspect]
     Active Substance: PALBOCICLIB
  2. LETROZOLE TAB 2.5MG [Suspect]
     Active Substance: LETROZOLE
  3. XGEVA [Concomitant]
     Active Substance: DENOSUMAB

REACTIONS (3)
  - Gingival pain [None]
  - Pain in jaw [None]
  - Oral pain [None]

NARRATIVE: CASE EVENT DATE: 20180718
